FAERS Safety Report 17248257 (Version 1)
Quarter: 2020Q1

REPORT INFORMATION
  Report Type: Spontaneous
  Country: DE (occurrence: DE)
  Receive Date: 20200108
  Receipt Date: 20200108
  Transmission Date: 20200409
  Serious: Yes (Hospitalization, Other)
  Sender: FDA-Public Use
  Company Number: DE-PFIZER INC-2020006943

PATIENT
  Age: 82 Year
  Sex: Female

DRUGS (2)
  1. PEMBROLIZUMAB. [Suspect]
     Active Substance: PEMBROLIZUMAB
     Indication: CLEAR CELL RENAL CELL CARCINOMA
     Dosage: 200 MG, EVERY 3 WEEKS
  2. AXITINIB [Suspect]
     Active Substance: AXITINIB
     Indication: CLEAR CELL RENAL CELL CARCINOMA
     Dosage: 5 MG, 2X/DAY
     Route: 048

REACTIONS (2)
  - Hepatitis [Recovered/Resolved]
  - Encephalitis [Recovered/Resolved]
